FAERS Safety Report 5295650-7 (Version None)
Quarter: 2007Q2

REPORT INFORMATION
  Report Type: 
  Country: None (occurrence: None)
  Receive Date: 20070410
  Receipt Date: 20070410
  Transmission Date: 20071010
  Serious: Yes (Hospitalization)
  Sender: FDA-Public Use
  Company Number: None

PATIENT
  Age: 59 Year
  Sex: Female
  Weight: 84.8226 kg

DRUGS (21)
  1. HEPARIN [Suspect]
     Indication: DISSEMINATED INTRAVASCULAR COAGULATION
     Dosage: TITRATE IV
     Route: 042
     Dates: start: 20070406, end: 20070407
  2. ENOXAPARIN 30 [Suspect]
     Indication: THROMBOSIS PROPHYLAXIS
     Dosage: 30 MG BID SQ
     Route: 058
     Dates: start: 20070308, end: 20070312
  3. LISINOPRIL [Concomitant]
  4. AMIODARONE HCL [Concomitant]
  5. BUMEX [Concomitant]
  6. CASPOFUNGIN [Concomitant]
  7. DAPTOMYCIN [Concomitant]
  8. EPOGEN [Concomitant]
  9. FELODIPINE [Concomitant]
  10. FERROUS SULFATE [Concomitant]
  11. HYDROCHLOROTHIAZIDE [Concomitant]
  12. METOPROLOL SUCCINATE [Concomitant]
  13. MIDAZOLAM HCL [Concomitant]
  14. MILRINONE [Concomitant]
  15. MORPHINE [Concomitant]
  16. NOREPINEPHRINE INJ [Concomitant]
  17. ZOSYN [Concomitant]
  18. RANITIDINE [Concomitant]
  19. VASOPRESSIN INJ [Concomitant]
  20. VECURONIUM BROMIDE [Concomitant]
  21. ZOLPIDEM [Concomitant]

REACTIONS (3)
  - DISSEMINATED INTRAVASCULAR COAGULATION [None]
  - HEPARIN-INDUCED THROMBOCYTOPENIA [None]
  - SEPSIS [None]
